FAERS Safety Report 10707416 (Version 2)
Quarter: 2015Q1

REPORT INFORMATION
  Report Type: Spontaneous
  Country: US (occurrence: US)
  Receive Date: 20150113
  Receipt Date: 20150303
  Transmission Date: 20150721
  Serious: Yes (Other)
  Sender: FDA-Public Use
  Company Number: US-ASTELLAS-2015US000317

PATIENT
  Age: 84 Year
  Sex: Female

DRUGS (1)
  1. MYRBETRIQ [Suspect]
     Active Substance: MIRABEGRON
     Indication: BLADDER DISORDER
     Dosage: UNK UNK, UNKNOWN FREQ.
     Route: 065

REACTIONS (10)
  - Cystitis [Unknown]
  - Vision blurred [Recovering/Resolving]
  - Hip arthroplasty [Unknown]
  - Fall [Unknown]
  - Paraesthesia [Recovering/Resolving]
  - Head discomfort [Unknown]
  - Tooth disorder [Unknown]
  - Syncope [Unknown]
  - Pruritus [Recovering/Resolving]
  - Photopsia [Unknown]
